FAERS Safety Report 5118010-8 (Version None)
Quarter: 2006Q3

REPORT INFORMATION
  Report Type: 
  Country: None (occurrence: None)
  Receive Date: 20060929
  Receipt Date: 20050822
  Transmission Date: 20061208
  Serious: No
  Sender: FDA-Public Use
  Company Number: US-GLAXOSMITHKLINE-A0571254A

PATIENT
  Age: 66 Year
  Sex: Female

DRUGS (2)
  1. EPIVIR-HBV [Suspect]
     Indication: DRUG USE FOR UNKNOWN INDICATION
     Dosage: 100MG PER DAY
     Route: 048
     Dates: start: 20050822
  2. GLUCOTROL [Suspect]
     Dosage: 5MG PER DAY
     Route: 048
     Dates: start: 20050801

REACTIONS (2)
  - BLOOD GLUCOSE DECREASED [None]
  - TREMOR [None]
